FAERS Safety Report 7865639-X (Version None)
Quarter: 2011Q4

REPORT INFORMATION
  Report Type: 
  Country: None (occurrence: None)
  Receive Date: 20111028
  Receipt Date: 20110127
  Transmission Date: 20120403
  Serious: No
  Sender: FDA-Public Use
  Company Number: US-GLAXOSMITHKLINE-A0909843A

PATIENT
  Age: 82 Year
  Sex: Male

DRUGS (6)
  1. SIMVASTATIN [Concomitant]
  2. ADVAIR DISKUS 100/50 [Suspect]
     Indication: DYSPNOEA
     Dosage: 1PUFF TWICE PER DAY
     Route: 055
     Dates: start: 20110120, end: 20110123
  3. METOPROLOL TARTRATE [Concomitant]
  4. AVODART [Concomitant]
  5. FLOMAX [Concomitant]
  6. SYNTHROID [Concomitant]

REACTIONS (1)
  - APHONIA [None]
